FAERS Safety Report 15888548 (Version 1)
Quarter: 2019Q1

REPORT INFORMATION
  Report Type: Spontaneous
  Country: DE (occurrence: DE)
  Receive Date: 20190130
  Receipt Date: 20190130
  Transmission Date: 20190417
  Serious: Yes (Other)
  Sender: FDA-Public Use
  Company Number: DE-TEVA-2019-DE-1002502

PATIENT
  Age: 6 Decade
  Sex: Female

DRUGS (1)
  1. COPAXONE [Suspect]
     Active Substance: GLATIRAMER ACETATE
     Dosage: PATIENT REDUCED THE SUSPECT DRUG TO 3-4 TIMES PER WEEK SEVERAL YEARS AGO

REACTIONS (4)
  - Multiple sclerosis relapse [Unknown]
  - Inappropriate schedule of product administration [Unknown]
  - Pain [Unknown]
  - Skin reaction [Unknown]
